FAERS Safety Report 7151774-0 (Version None)
Quarter: 2010Q4

REPORT INFORMATION
  Report Type: 
  Country: None (occurrence: None)
  Receive Date: 20101124
  Receipt Date: 20101109
  Transmission Date: 20110411
  Serious: No
  Sender: FDA-Public Use
  Company Number: 2010AM002999

PATIENT
  Sex: Female
  Weight: 87.9978 kg

DRUGS (33)
  1. SYMLIN [Suspect]
     Indication: TYPE 1 DIABETES MELLITUS
     Dosage: 15 MCG; TID; SC
     Route: 058
     Dates: start: 20100921
  2. HUMALOG [Concomitant]
  3. NOVOLOG [Concomitant]
  4. NITROGLYCERIN [Concomitant]
  5. CRESTOR [Concomitant]
  6. AMLODIPINE [Concomitant]
  7. METOPROLOL [Concomitant]
  8. ISOSORBIDE MONONITRATE [Concomitant]
  9. COZAAR [Concomitant]
  10. SODIUM BICARBONATE [Concomitant]
  11. LASIX [Concomitant]
  12. GABAPENTIN [Concomitant]
  13. PHOSLO [Concomitant]
  14. RENVELA [Concomitant]
  15. NEXIUM [Concomitant]
  16. LOVAZA [Concomitant]
  17. TRAZODONE HCL [Concomitant]
  18. ZEMPLAR [Concomitant]
  19. FLUTICASONE PROPIONATE [Concomitant]
  20. SINGULAIR [Concomitant]
  21. FOLIC ACID [Concomitant]
  22. ASPIRIN [Concomitant]
  23. VITAMIN E [Concomitant]
  24. VITAMIN B-12 [Concomitant]
  25. DIFLUCAN [Concomitant]
  26. ERGOCALCIFEROL [Concomitant]
  27. XOPONEX [Concomitant]
  28. ADVAIR [Concomitant]
  29. FEXIDINE [Concomitant]
  30. ACZONE GEL [Concomitant]
  31. DARVOCET [Concomitant]
  32. LIDODERM [Concomitant]
  33. LIPITOR [Concomitant]

REACTIONS (5)
  - ABSCESS LIMB [None]
  - ARTHROPOD BITE [None]
  - BLOOD GLUCOSE DECREASED [None]
  - PNEUMONIA ASPIRATION [None]
  - RENAL FAILURE [None]
